FAERS Safety Report 22245024 (Version 5)
Quarter: 2023Q2

REPORT INFORMATION
  Report Type: Report from Study
  Country: MX (occurrence: None)
  Receive Date: 20230424
  Receipt Date: 20230627
  Transmission Date: 20230722
  Serious: Yes (Hospitalization)
  Sender: FDA-Public Use
  Company Number: MX-ROCHE-3286734

PATIENT
  Age: 72 Year
  Sex: Female
  Weight: 57.7 kg

DRUGS (35)
  1. POLATUZUMAB VEDOTIN [Suspect]
     Active Substance: POLATUZUMAB VEDOTIN
     Indication: Diffuse large B-cell lymphoma
     Dosage: DOSE OF LAST POLATUZUMAB VEDOTIN ADMINISTERED PRIOR TO AE AND SAE ONSET: 70 MG?DATE OF MOST RECENT D
     Route: 042
     Dates: start: 20221206
  2. RITUXIMAB [Suspect]
     Active Substance: RITUXIMAB
     Indication: Diffuse large B-cell lymphoma
     Dosage: DOSE OF LAST RITUXIMAB ADMINISTERED PRIOR TO AE AND SAE ONSET: 570 MG?DATE OF MOST RECENT DOSE OF RI
     Route: 042
     Dates: start: 20221206
  3. GEMCITABINE [Suspect]
     Active Substance: GEMCITABINE
     Indication: Diffuse large B-cell lymphoma
     Dosage: DOSE OF LAST GEMCITABINE ADMINISTERED PRIOR TO AE AND SAE ONSET: 1150 MG?DATE OF MOST RECENT DOSE OF
     Route: 042
     Dates: start: 20221207
  4. OXALIPLATIN [Suspect]
     Active Substance: OXALIPLATIN
     Indication: Diffuse large B-cell lymphoma
     Dosage: DOSE OF LAST OXALIPLATIN ADMINISTERED PRIOR TO AE ONSET AND SAE ONSET: 115 MG?DATE OF MOST RECENT DO
     Route: 042
     Dates: start: 20221207
  5. FILGRASTIM [Concomitant]
     Active Substance: FILGRASTIM
     Indication: Neutropenia
     Route: 058
     Dates: start: 20221209
  6. FILGRASTIM [Concomitant]
     Active Substance: FILGRASTIM
     Route: 058
     Dates: start: 20230420, end: 20230425
  7. FILGRASTIM [Concomitant]
     Active Substance: FILGRASTIM
     Route: 058
     Dates: start: 20230511, end: 20230516
  8. FILGRASTIM [Concomitant]
     Active Substance: FILGRASTIM
     Route: 058
     Dates: start: 20230601, end: 20230606
  9. ONDANSETRON [Concomitant]
     Active Substance: ONDANSETRON
     Indication: Nausea
     Route: 048
     Dates: start: 20221212, end: 20221215
  10. ONDANSETRON [Concomitant]
     Active Substance: ONDANSETRON
     Route: 048
     Dates: start: 20230513
  11. ONDANSETRON [Concomitant]
     Active Substance: ONDANSETRON
     Route: 048
     Dates: start: 20230605, end: 20230606
  12. CITALOPRAM [Concomitant]
     Active Substance: CITALOPRAM HYDROBROMIDE
     Route: 048
     Dates: start: 20191001
  13. HYDROXYZINE [Concomitant]
     Active Substance: HYDROXYZINE HYDROCHLORIDE
     Route: 048
     Dates: start: 20220801
  14. METOCLOPRAMIDE [Concomitant]
     Active Substance: METOCLOPRAMIDE
     Route: 048
     Dates: start: 20221212, end: 20221215
  15. TRIMEBUTINE [Concomitant]
     Active Substance: TRIMEBUTINE
     Route: 048
     Dates: start: 20221225, end: 20221227
  16. KETOROLAC [Concomitant]
     Active Substance: KETOROLAC TROMETHAMINE
     Indication: Gastroenteritis
     Route: 048
     Dates: start: 20221225, end: 20221227
  17. BUTYLSCOPOLAMINE BROMIDE [Concomitant]
     Active Substance: BUTYLSCOPOLAMINE BROMIDE
     Route: 048
     Dates: start: 20221225, end: 20221227
  18. HYDROCORTISONE [Concomitant]
     Active Substance: HYDROCORTISONE
     Route: 042
     Dates: start: 20221228, end: 20221228
  19. DIPHENHYDRAMINE [Concomitant]
     Active Substance: DIPHENHYDRAMINE
     Route: 042
     Dates: start: 20221228, end: 20221228
  20. ACYCLOVIR [Concomitant]
     Active Substance: ACYCLOVIR
     Dosage: 4000 IU
     Route: 048
     Dates: start: 20221228
  21. TRIMETHOPRIM [Concomitant]
     Active Substance: TRIMETHOPRIM
     Dosage: 4000 IU
     Route: 048
     Dates: start: 20221228
  22. SULFAMETHOXAZOLE [Concomitant]
     Active Substance: SULFAMETHOXAZOLE
     Dosage: 4000 IU
     Route: 048
     Dates: start: 20221228
  23. ACETAMINOPHEN [Concomitant]
     Active Substance: ACETAMINOPHEN
     Indication: Spinal fracture
     Dosage: 4000 IU
     Route: 048
     Dates: start: 20230118, end: 20230124
  24. ACETAMINOPHEN [Concomitant]
     Active Substance: ACETAMINOPHEN
     Route: 048
     Dates: start: 20230224
  25. MONTMORILLONITE [Concomitant]
     Active Substance: MONTMORILLONITE
     Dosage: 4000 IU
     Route: 048
     Dates: start: 20230102, end: 20230106
  26. TRIMEBUTINE [Concomitant]
     Active Substance: TRIMEBUTINE
     Route: 048
     Dates: start: 20221228, end: 20230109
  27. SIMETHICONE (DIMETHICONE) [Concomitant]
     Active Substance: DIMETHICONE
     Route: 048
     Dates: start: 20221228, end: 20230109
  28. RIVAROXABAN [Concomitant]
     Active Substance: RIVAROXABAN
     Route: 048
     Dates: start: 20230324, end: 20230324
  29. TRAMADOL [Concomitant]
     Active Substance: TRAMADOL
     Indication: Spinal fracture
     Route: 048
     Dates: start: 20230224
  30. LOPERAMIDE [Concomitant]
     Active Substance: LOPERAMIDE
     Indication: Enterocolitis
     Route: 048
     Dates: start: 20221223, end: 20221223
  31. CHLOROPYRAMINE [Concomitant]
     Active Substance: CHLOROPYRAMINE
     Indication: Enterocolitis
     Route: 048
     Dates: start: 20221212, end: 20221215
  32. CYTIDINE MONOPHOSPHATE DISODIUM [Concomitant]
     Route: 048
     Dates: start: 20230416
  33. URIDINE TRIPHOSPHATE TRISODIUM [Concomitant]
     Route: 048
     Dates: start: 20230416
  34. CELECOXIB [Concomitant]
     Active Substance: CELECOXIB
     Route: 048
     Dates: start: 20230508
  35. GABAPENTIN [Concomitant]
     Active Substance: GABAPENTIN
     Indication: Peripheral sensory neuropathy
     Route: 048
     Dates: start: 20230517

REACTIONS (4)
  - Thrombocytopenia [Recovered/Resolved]
  - Anaemia [Recovering/Resolving]
  - Atypical pneumonia [Recovered/Resolved]
  - Enterocolitis [Recovered/Resolved]

NARRATIVE: CASE EVENT DATE: 20221226
